FAERS Safety Report 14587305 (Version 1)
Quarter: 2018Q1

REPORT INFORMATION
  Report Type: Spontaneous
  Country: US (occurrence: US)
  Receive Date: 20180228
  Receipt Date: 20180228
  Transmission Date: 20180509
  Serious: Yes (Hospitalization)
  Sender: FDA-Public Use
  Company Number: None

PATIENT
  Age: 18 Year
  Sex: Female

DRUGS (1)
  1. JOLESSA [Suspect]
     Active Substance: ETHINYL ESTRADIOL\LEVONORGESTREL
     Dates: start: 20171114, end: 20180109

REACTIONS (2)
  - Thrombosis [None]
  - Pulmonary embolism [None]

NARRATIVE: CASE EVENT DATE: 20180109
